FAERS Safety Report 5063859-3 (Version None)
Quarter: 2006Q3

REPORT INFORMATION
  Report Type: 
  Country: None (occurrence: None)
  Receive Date: 20060703
  Receipt Date: 20060405
  Transmission Date: 20061208
  Serious: No
  Sender: FDA-Public Use
  Company Number: 2006S1003110

PATIENT
  Age: 54 Year
  Sex: Female

DRUGS (7)
  1. CLOZAPINE [Suspect]
     Indication: SCHIZOAFFECTIVE DISORDER
     Dosage: SEE IMAGE
     Route: 048
     Dates: start: 20010101
  2. POTASSIUM CHLORIDE [Concomitant]
  3. ACETAMINOPHEN [Concomitant]
  4. LORATADINE [Concomitant]
  5. VALPROATE SODIUM [Concomitant]
  6. MAGNESIUM HYDROXIDE TAB [Concomitant]
  7. FLUDROCORTISONE ACETATE [Concomitant]

REACTIONS (1)
  - GRANULOCYTOPENIA [None]
